FAERS Safety Report 15662992 (Version 2)
Quarter: 2019Q1

REPORT INFORMATION
  Report Type: Spontaneous
  Country: US (occurrence: US)
  Receive Date: 20181127
  Receipt Date: 20190207
  Transmission Date: 20190417
  Serious: Yes (Other)
  Sender: FDA-Public Use
  Company Number: US-SA-2018SA322030

PATIENT
  Age: 51 Year
  Sex: Female
  Weight: 91 kg

DRUGS (14)
  1. REQUIP [Concomitant]
     Active Substance: ROPINIROLE HYDROCHLORIDE
     Dosage: UNK
     Dates: start: 20090324
  2. TEGRETOL [Concomitant]
     Active Substance: CARBAMAZEPINE
     Dosage: UNK
     Dates: start: 20090324, end: 20090428
  3. EMEND [Concomitant]
     Active Substance: APREPITANT
  4. TAXOTERE [Suspect]
     Active Substance: DOCETAXEL
     Indication: BREAST CANCER FEMALE
     Dosage: 136 MG-143 MG
     Route: 042
     Dates: start: 20090421, end: 20090421
  5. TAXOTERE [Suspect]
     Active Substance: DOCETAXEL
     Dosage: 136 MG-143 MG
     Route: 042
     Dates: start: 20090803, end: 20090803
  6. HEPARIN LOCK FLUSH [Concomitant]
     Active Substance: HEPARIN SODIUM
     Dosage: 500 U, QD
     Dates: start: 20090421
  7. DEXAMETHASONE SODIUM PHOSPHATE. [Concomitant]
     Active Substance: DEXAMETHASONE SODIUM PHOSPHATE
     Dosage: 12 MG
     Route: 042
     Dates: start: 20090421
  8. ADRIAMYCIN [Concomitant]
     Active Substance: DOXORUBICIN HYDROCHLORIDE
     Dosage: 91 MG
     Route: 042
     Dates: start: 20090421
  9. TEGRETOL [Concomitant]
     Active Substance: CARBAMAZEPINE
     Dosage: UNK
     Dates: start: 20090428
  10. NEOSAR [Concomitant]
     Active Substance: CYCLOPHOSPHAMIDE
     Dosage: 35 MG
     Route: 042
     Dates: start: 20090421
  11. GEODON [ZIPRASIDONE HYDROCHLORIDE] [Concomitant]
  12. SODIUM CHLORIDE. [Concomitant]
     Active Substance: SODIUM CHLORIDE
     Dosage: 100 ML, 1X
     Route: 042
     Dates: start: 20090421
  13. KYTRIL [Concomitant]
     Active Substance: GRANISETRON HYDROCHLORIDE
  14. PALONOSETRON HCL [Concomitant]
     Active Substance: PALONOSETRON HYDROCHLORIDE
     Dosage: 0.2 MG
     Route: 042
     Dates: start: 20090421

REACTIONS (2)
  - Psychological trauma [Unknown]
  - Alopecia [Not Recovered/Not Resolved]

NARRATIVE: CASE EVENT DATE: 201001
